FAERS Safety Report 9867914 (Version 5)
Quarter: 2015Q3

REPORT INFORMATION
  Report Type: Report from Study
  Country: BR (occurrence: BR)
  Receive Date: 20140204
  Receipt Date: 20150904
  Transmission Date: 20151125
  Serious: Yes (Hospitalization, Other)
  Sender: FDA-Public Use
  Company Number: PHHY2014BR012346

PATIENT
  Sex: Female
  Weight: 40 kg

DRUGS (5)
  1. SPIRIVA [Suspect]
     Active Substance: TIOTROPIUM BROMIDE MONOHYDRATE
     Indication: CHRONIC OBSTRUCTIVE PULMONARY DISEASE
     Dosage: 2.5 MG, QD (ONCE IN THE MORNING)
     Route: 055
  2. FORASEQ [Suspect]
     Active Substance: BUDESONIDE\FORMOTEROL FUMARATE
     Indication: CHRONIC OBSTRUCTIVE PULMONARY DISEASE
     Dosage: 2 DF, BID (ONCE IN THE MORNING AND ONCE AT NIGHT)
     Route: 055
  3. MELHORAL [Concomitant]
     Active Substance: ASPIRIN\CAFFEINE
     Indication: PRODUCT USED FOR UNKNOWN INDICATION
     Route: 065
  4. ONBREZ [Suspect]
     Active Substance: INDACATEROL
     Indication: CHRONIC OBSTRUCTIVE PULMONARY DISEASE
     Dosage: 300 MG, QD
     Route: 055
  5. ACETYLCYSTEINE. [Suspect]
     Active Substance: ACETYLCYSTEINE
     Indication: PRODUCT USED FOR UNKNOWN INDICATION
     Dosage: ONCE IN THE MORNING
     Route: 065

REACTIONS (28)
  - Oxygen consumption decreased [Unknown]
  - Gastrointestinal disorder [Not Recovered/Not Resolved]
  - Blood pressure abnormal [Recovered/Resolved]
  - Asthenia [Unknown]
  - Fatigue [Recovering/Resolving]
  - Malaise [Unknown]
  - Respiratory disorder [Unknown]
  - Colitis [Unknown]
  - Hypersensitivity [Not Recovered/Not Resolved]
  - Chronic obstructive pulmonary disease [Unknown]
  - Pneumonia [Recovered/Resolved]
  - Balance disorder [Not Recovered/Not Resolved]
  - Hypoxia [Unknown]
  - Temperature intolerance [Not Recovered/Not Resolved]
  - Nasal congestion [Not Recovered/Not Resolved]
  - Chills [Recovered/Resolved]
  - Secretion discharge [Not Recovered/Not Resolved]
  - Nasopharyngitis [Unknown]
  - Dyspnoea [Recovering/Resolving]
  - Lung disorder [Not Recovered/Not Resolved]
  - Hormone level abnormal [Not Recovered/Not Resolved]
  - Memory impairment [Recovering/Resolving]
  - Nervous system disorder [Unknown]
  - Back pain [Not Recovered/Not Resolved]
  - Rhinitis [Unknown]
  - Heart rate increased [Not Recovered/Not Resolved]
  - Tremor [Not Recovered/Not Resolved]
  - Cough [Not Recovered/Not Resolved]

NARRATIVE: CASE EVENT DATE: 2013
